FAERS Safety Report 6074911-8 (Version None)
Quarter: 2009Q1

REPORT INFORMATION
  Report Type: 
  Country: None (occurrence: None)
  Receive Date: 20090210
  Receipt Date: 20090130
  Transmission Date: 20090719
  Serious: Yes (Death, Hospitalization)
  Sender: FDA-Public Use
  Company Number: 2008SP024521

PATIENT
  Age: 90 Year
  Sex: Female
  Weight: 64.4108 kg

DRUGS (9)
  1. INTEGRILIN [Suspect]
     Indication: ACUTE MYOCARDIAL INFARCTION
     Dosage: 5.6 ML ONCE; IV, 10 ML, QH; IV
     Route: 042
     Dates: start: 20081128, end: 20081128
  2. INTEGRILIN [Suspect]
     Indication: ACUTE MYOCARDIAL INFARCTION
     Dosage: 5.6 ML ONCE; IV, 10 ML, QH; IV
     Route: 042
     Dates: start: 20081128
  3. ASPIRIN [Suspect]
     Indication: DRUG USE FOR UNKNOWN INDICATION
     Dates: start: 20081128
  4. LOVENOX [Suspect]
     Indication: DRUG USE FOR UNKNOWN INDICATION
     Dates: start: 20081128
  5. PLAVIX [Suspect]
     Indication: DRUG USE FOR UNKNOWN INDICATION
     Dosage: 75 MG, PO
     Route: 048
     Dates: start: 20081201
  6. MECLIZINE [Concomitant]
  7. ALLEGRA D 24 HOUR [Concomitant]
  8. ZOLOFT [Concomitant]
  9. AZITHROMYCIN [Concomitant]

REACTIONS (3)
  - POST PROCEDURAL COMPLICATION [None]
  - RETROPERITONEAL HAEMORRHAGE [None]
  - THROMBOSIS [None]
